FAERS Safety Report 5730156-X (Version None)
Quarter: 2008Q2

REPORT INFORMATION
  Report Type: 
  Country: None (occurrence: None)
  Receive Date: 20080502
  Receipt Date: 20080418
  Transmission Date: 20081010
  Serious: Yes (Hospitalization)
  Sender: FDA-Public Use
  Company Number: DSA_31739_2008

PATIENT
  Age: 47 Year
  Sex: Female

DRUGS (2)
  1. ENALAPRIL MALEATE AND HYDROCHLOROTHIAZIDE [Suspect]
     Indication: ESSENTIAL HYPERTENSION
     Dosage: (DF ORAL)
     Route: 048
     Dates: start: 20071001
  2. LOBIVON [Concomitant]

REACTIONS (4)
  - ANGIOEDEMA [None]
  - ENANTHEMA [None]
  - HYPERGLYCAEMIA [None]
  - LEUKOCYTOSIS [None]
